FAERS Safety Report 14410544 (Version 2)
Quarter: 2018Q1

REPORT INFORMATION
  Report Type: Spontaneous
  Country: AU (occurrence: AU)
  Receive Date: 20180119
  Receipt Date: 20180202
  Transmission Date: 20180509
  Serious: Yes (Other)
  Sender: FDA-Public Use
  Company Number: PHHY2017AU199355

PATIENT

DRUGS (2)
  1. IMATINIB [Suspect]
     Active Substance: IMATINIB
     Dosage: UNK
     Route: 065
     Dates: start: 2016
  2. IMATINIB [Suspect]
     Active Substance: IMATINIB
     Indication: PRODUCT USED FOR UNKNOWN INDICATION
     Dosage: UNK
     Route: 065
     Dates: start: 2007, end: 2013

REACTIONS (13)
  - Philadelphia chromosome positive [Unknown]
  - Nausea [Unknown]
  - Dizziness [Unknown]
  - Drug ineffective [Unknown]
  - Vomiting [Unknown]
  - Dyspepsia [Unknown]
  - Blood testosterone increased [Unknown]
  - Drug intolerance [Unknown]
  - Abdominal pain upper [Unknown]
  - Constipation [Unknown]
  - Gastritis [Unknown]
  - Fatigue [Unknown]
  - Alopecia [Unknown]
